FAERS Safety Report 4610064-8 (Version None)
Quarter: 2005Q1

REPORT INFORMATION
  Report Type: 
  Country: None (occurrence: None)
  Receive Date: 20050316
  Receipt Date: 20050311
  Transmission Date: 20050727
  Serious: Yes (Hospitalization)
  Sender: FDA-Public Use
  Company Number: JP-GLAXOSMITHKLINE-B0374554A

PATIENT
  Sex: Female
  Weight: 3 kg

DRUGS (5)
  1. PAXIL [Suspect]
     Indication: AFFECTIVE DISORDER
     Dosage: 40MG PER DAY
  2. HIRNAMIN [Concomitant]
  3. BENZALIN [Concomitant]
  4. LEXOTAN [Concomitant]
  5. TETRAMIDE [Concomitant]

REACTIONS (3)
  - BRADYKINESIA [None]
  - DRUG EXPOSURE DURING PREGNANCY [None]
  - EATING DISORDER [None]
